FAERS Safety Report 19787951 (Version 1)
Quarter: 2021Q3

REPORT INFORMATION
  Report Type: Spontaneous
  Country: JP (occurrence: JP)
  Receive Date: 20210903
  Receipt Date: 20210903
  Transmission Date: 20211014
  Serious: Yes (Other)
  Sender: FDA-Public Use
  Company Number: JP-PFIZER INC-202101084492

PATIENT
  Age: 48 Year
  Sex: Female

DRUGS (1)
  1. LORBRENA [Suspect]
     Active Substance: LORLATINIB
     Indication: LUNG NEOPLASM MALIGNANT
     Dosage: UNK

REACTIONS (4)
  - Oedema [Unknown]
  - Blood triglycerides increased [Recovering/Resolving]
  - Hypercholesterolaemia [Recovering/Resolving]
  - Deafness [Unknown]
